FAERS Safety Report 11031325 (Version 1)
Quarter: 2015Q2

REPORT INFORMATION
  Report Type: Spontaneous
  Country: US (occurrence: US)
  Receive Date: 20150415
  Receipt Date: 20150415
  Transmission Date: 20150821
  Serious: No
  Sender: FDA-Public Use
  Company Number: US-PFIZER INC-2015124112

PATIENT
  Age: 76 Year
  Sex: Female
  Weight: 79.37 kg

DRUGS (18)
  1. LYRICA [Suspect]
     Active Substance: PREGABALIN
     Indication: PAIN IN EXTREMITY
     Dosage: 50 MG, 3X/DAY
  2. HYDROCHLOROTHIAZIDE/LOSARTAN [Concomitant]
     Indication: BLOOD PRESSURE ABNORMAL
     Dosage: LOSARTAN 100 MG/ HYDROCHLOROTHIAZIDE 25 MG, 1X/DAY
  3. VITAMIN D3 [Concomitant]
     Active Substance: CHOLECALCIFEROL
     Dosage: 1000 IU, UNK
  4. CENTRUM [Concomitant]
     Active Substance: VITAMINS
     Dosage: UNK
  5. ESTRADIOL. [Concomitant]
     Active Substance: ESTRADIOL
     Dosage: 1 MG, 1X/DAY
  6. OCUVITE [Concomitant]
     Active Substance: VITAMINS
     Indication: VISUAL IMPAIRMENT
  7. LYRICA [Suspect]
     Active Substance: PREGABALIN
     Indication: SWELLING
  8. SIMVASTATIN. [Concomitant]
     Active Substance: SIMVASTATIN
     Indication: BLOOD CHOLESTEROL ABNORMAL
     Dosage: 10 MG, UNK
  9. NAPROXEN. [Concomitant]
     Active Substance: NAPROXEN
     Indication: OSTEOARTHRITIS
     Dosage: 500 MG, ONE OR TWO A DAY
  10. CITALOPRAM [Concomitant]
     Active Substance: CITALOPRAM HYDROBROMIDE
     Indication: NERVOUS SYSTEM DISORDER
     Dosage: 20 MG, UNK
  11. BIOTIN [Concomitant]
     Active Substance: BIOTIN
     Dosage: 5000 ?G, UNK
  12. OMEPRAZOLE. [Concomitant]
     Active Substance: OMEPRAZOLE
     Indication: ULCER
     Dosage: 20 MG, UNK
  13. OCUVITE [Concomitant]
     Active Substance: VITAMINS
     Indication: CATARACT
     Dosage: 125-25 MG ONE A DAY
  14. COQ 10 [Concomitant]
     Active Substance: UBIDECARENONE
     Dosage: 200 MG, 2X/DAY
  15. LOMOTIL [Concomitant]
     Active Substance: ATROPINE SULFATE\DIPHENOXYLATE HYDROCHLORIDE
     Indication: DIARRHOEA
     Dosage: ONE OR TWO
  16. FERROUS SULFATE [Concomitant]
     Active Substance: FERROUS SULFATE\FERROUS SULFATE, DRIED
     Indication: MINERAL SUPPLEMENTATION
     Dosage: 200 MG, UNK
  17. LYRICA [Suspect]
     Active Substance: PREGABALIN
     Indication: BURNING SENSATION
     Dosage: 50 MG, 2X/DAY
  18. FUROSEMIDE. [Concomitant]
     Active Substance: FUROSEMIDE
     Indication: DIURETIC THERAPY
     Dosage: 20 MG, 1X/DAY

REACTIONS (2)
  - Nightmare [Recovering/Resolving]
  - Drug effect incomplete [Unknown]
